FAERS Safety Report 25506923 (Version 1)
Quarter: 2025Q3

REPORT INFORMATION
  Report Type: Spontaneous
  Country: US (occurrence: US)
  Receive Date: 20250702
  Receipt Date: 20250702
  Transmission Date: 20251020
  Serious: No
  Sender: GALDERMA
  Company Number: US-GALDERMA-US2025001885

PATIENT

DRUGS (5)
  1. COSMETICS [Suspect]
     Active Substance: COSMETICS
     Route: 061
     Dates: start: 20241101, end: 20250206
  2. COSMETICS [Suspect]
     Active Substance: COSMETICS
     Route: 061
  3. COSMETICS [Suspect]
     Active Substance: COSMETICS
     Route: 061
  4. COSMETICS [Suspect]
     Active Substance: COSMETICS
     Route: 061
  5. DOXYCYCLINE [Suspect]
     Active Substance: DOXYCYCLINE
     Indication: Product used for unknown indication
     Route: 065

REACTIONS (2)
  - Skin burning sensation [Recovering/Resolving]
  - Rash [Recovering/Resolving]
